FAERS Safety Report 6822780-8 (Version None)
Quarter: 2010Q3

REPORT INFORMATION
  Report Type: 
  Country: None (occurrence: None)
  Receive Date: 20100708
  Receipt Date: 20100625
  Transmission Date: 20110219
  Serious: Yes (Other)
  Sender: FDA-Public Use
  Company Number: MA-ROCHE-711831

PATIENT
  Sex: Female
  Weight: 100 kg

DRUGS (5)
  1. TOCILIZUMAB [Suspect]
     Indication: RHEUMATOID ARTHRITIS
     Dosage: UNITS: 40 ML, FORM AND FREQUENCY NOT PROVIDED. LAST DOSE PRIOR TO SAE: 20 MAY 2010.
     Route: 042
     Dates: start: 20100520, end: 20100625
  2. SALAZOPYRINE [Suspect]
     Indication: PRODUCT USED FOR UNKNOWN INDICATION
     Route: 065
  3. ISONIAZID [Suspect]
     Indication: PRODUCT USED FOR UNKNOWN INDICATION
     Route: 065
     Dates: start: 20090401, end: 20090901
  4. DIAMICRON [Concomitant]
  5. PREDNISONE [Concomitant]
     Route: 065

REACTIONS (1)
  - CYTOLYTIC HEPATITIS [None]
